FAERS Safety Report 6208994-9 (Version None)
Quarter: 2009Q2

REPORT INFORMATION
  Report Type: 
  Country: None (occurrence: None)
  Receive Date: 20090529
  Receipt Date: 20090519
  Transmission Date: 20091009
  Serious: Yes (Hospitalization)
  Sender: FDA-Public Use
  Company Number: PHHY2009BE20238

PATIENT
  Age: 68 Year
  Sex: Female

DRUGS (15)
  1. ACLASTA [Suspect]
     Indication: OSTEONECROSIS
     Dosage: UNK
     Dates: start: 20080804
  2. AREDIA [Suspect]
     Indication: OSTEONECROSIS
     Dosage: UNK
     Dates: start: 20060101, end: 20080101
  3. TEVETEN [Concomitant]
  4. KREDEX [Concomitant]
  5. ASAFLOW [Concomitant]
  6. AMLODIPINE BESYLATE [Concomitant]
  7. TRITACE [Concomitant]
  8. HYGROTON [Concomitant]
  9. DYTA-URESE [Concomitant]
  10. FLUOXETINE HCL [Concomitant]
  11. OMEPRAZOLE [Concomitant]
  12. LORAZEPAM [Concomitant]
  13. FERO-GRAD [Concomitant]
  14. DOMINAL [Concomitant]
  15. ACETAMINOPHEN [Concomitant]

REACTIONS (3)
  - BLOOD CREATININE INCREASED [None]
  - HYPOCALCAEMIA [None]
  - RENAL FAILURE ACUTE [None]
